FAERS Safety Report 8668838 (Version 2)
Quarter: 2012Q4

REPORT INFORMATION
  Report Type: 
  Country: US (occurrence: US)
  Receive Date: 20120717
  Receipt Date: 20121123
  Transmission Date: 20130627
  Serious: Yes (Hospitalization, Other)
  Sender: FDA-Public Use
  Company Number: PHHY2012US059298

PATIENT
  Age: 65 Year
  Sex: Female

DRUGS (4)
  1. OCTREOTIDE [Suspect]
     Indication: GASTROINTESTINAL HAEMORRHAGE
     Dosage: 50 ug/hr, UNK
  2. PROPOFOL [Suspect]
     Dosage: UNK UKN, UNK
     Route: 041
  3. PANTOPRAZOLE [Concomitant]
     Dosage: 8 mg/h, UNK
  4. MIDAZOLAM [Concomitant]
     Dosage: UNK UKN, UNK

REACTIONS (2)
  - Cardiac arrest [Recovered/Resolved]
  - Bradycardia [Recovered/Resolved]
